FAERS Safety Report 6162744-3 (Version None)
Quarter: 2009Q2

REPORT INFORMATION
  Report Type: 
  Country: None (occurrence: None)
  Receive Date: 20090421
  Receipt Date: 20080423
  Transmission Date: 20091009
  Serious: No
  Sender: FDA-Public Use
  Company Number: US-ASTRAZENECA-2008UW08253

PATIENT
  Age: 62 Year
  Sex: Female
  Weight: 117.9 kg

DRUGS (3)
  1. TOPROL-XL [Suspect]
     Indication: ANGINA PECTORIS
     Route: 048
  2. TOPROL-XL [Suspect]
     Route: 048
  3. DARVOCET [Concomitant]
     Indication: PAIN

REACTIONS (1)
  - RASH PRURITIC [None]
